FAERS Safety Report 7339054-1 (Version None)
Quarter: 2011Q1

REPORT INFORMATION
  Report Type: 
  Country: None (occurrence: None)
  Receive Date: 20110308
  Receipt Date: 20110223
  Transmission Date: 20110831
  Serious: Yes (Other)
  Sender: FDA-Public Use
  Company Number: FR-ELI_LILLY_AND_COMPANY-FR201103000115

PATIENT
  Sex: Female

DRUGS (4)
  1. CYMBALTA [Suspect]
     Indication: NEURALGIA
     Dosage: 60 MG, DAILY (1/D)
     Route: 048
     Dates: start: 20090709, end: 20090822
  2. MODOPAR [Concomitant]
     Indication: PARKINSON'S DISEASE
  3. LEVOTHYROXINE SODIUM [Concomitant]
     Indication: HYPOTHYROIDISM
  4. ATHYMIL [Concomitant]
     Indication: DEPRESSION

REACTIONS (4)
  - OEDEMA PERIPHERAL [None]
  - HYPERTENSION [None]
  - PULMONARY EMBOLISM [None]
  - CARDIAC FAILURE [None]
